FAERS Safety Report 11642131 (Version 1)
Quarter: 2015Q4

REPORT INFORMATION
  Report Type: Spontaneous
  Country: US (occurrence: US)
  Receive Date: 20151019
  Receipt Date: 20151019
  Transmission Date: 20160304
  Serious: Yes (Other)
  Sender: FDA-Public Use
  Company Number: US-SHIONOGI, INC.-2015001095

PATIENT
  Sex: Female

DRUGS (4)
  1. OSPHENA [Suspect]
     Active Substance: OSPEMIFENE
     Dosage: 60 MG, QD, PRESCRIPTION
     Route: 048
     Dates: start: 20150812, end: 201509
  2. GNC BIG 50 [Concomitant]
     Indication: VITAMIN SUPPLEMENTATION
  3. CALCIUM [Concomitant]
     Active Substance: CALCIUM
     Indication: VITAMIN SUPPLEMENTATION
     Dosage: UNK
     Route: 065
     Dates: end: 201509
  4. OSPHENA [Suspect]
     Active Substance: OSPEMIFENE
     Indication: DYSPAREUNIA
     Dosage: 60 MG, QD, 7 DAY SAMPLE PACK
     Route: 048
     Dates: start: 20150805, end: 20150811

REACTIONS (10)
  - Vomiting [Unknown]
  - Escherichia infection [Unknown]
  - Blood pressure abnormal [Unknown]
  - Xanthopsia [Recovered/Resolved]
  - Hyperhidrosis [Recovered/Resolved]
  - Unevaluable event [Recovered/Resolved]
  - Urinary tract infection [Unknown]
  - Feeling hot [Recovered/Resolved]
  - Back pain [Unknown]
  - Blindness [Recovered/Resolved]

NARRATIVE: CASE EVENT DATE: 2015
